FAERS Safety Report 19466228 (Version 2)
Quarter: 2021Q3

REPORT INFORMATION
  Report Type: Report from Study
  Country: DE (occurrence: DE)
  Receive Date: 20210625
  Receipt Date: 20210707
  Transmission Date: 20211014
  Serious: Yes (Hospitalization, Other)
  Sender: FDA-Public Use
  Company Number: DE-BRISTOL-MYERS SQUIBB COMPANY-BMS-2021-059576

PATIENT
  Age: 68 Year
  Sex: Male
  Weight: 75 kg

DRUGS (7)
  1. BMS?986321?01 [Suspect]
     Active Substance: INVESTIGATIONAL PRODUCT
     Indication: METASTATIC MALIGNANT MELANOMA
     Dosage: 0.46 MILLIGRAM
     Route: 042
     Dates: start: 20210511
  2. PREDNISOLON [PREDNISOLONE] [Concomitant]
     Active Substance: PREDNISOLONE
     Indication: LIPASE INCREASED
     Dosage: 25 MILLIGRAM
     Route: 048
     Dates: start: 20210526, end: 20210607
  3. PREDNISOLON [PREDNISOLONE] [Concomitant]
     Active Substance: PREDNISOLONE
     Dosage: 15 MILLIGRAM
     Route: 048
     Dates: start: 20210608, end: 20210615
  4. NIVOLUMAB [Suspect]
     Active Substance: NIVOLUMAB
     Indication: METASTATIC MALIGNANT MELANOMA
     Dosage: 360 MILLIGRAM
     Route: 042
     Dates: start: 20210511
  5. PREDNISOLON [PREDNISOLONE] [Concomitant]
     Active Substance: PREDNISOLONE
     Indication: BLOOD CREATININE INCREASED
     Dosage: 7.5 MILLIGRAM
     Route: 048
     Dates: start: 20210616
  6. PARACETAMOL [Concomitant]
     Active Substance: ACETAMINOPHEN
     Indication: PRODUCT USED FOR UNKNOWN INDICATION
     Dosage: 500 MILLIGRAM
     Route: 048
     Dates: start: 20210511
  7. PANTOPRAZOL [PANTOPRAZOLE] [Concomitant]
     Active Substance: PANTOPRAZOLE
     Indication: PRODUCT USED FOR UNKNOWN INDICATION
     Dosage: 40 MILLIGRAM
     Route: 048
     Dates: start: 20210521

REACTIONS (1)
  - Encephalitis [Recovered/Resolved with Sequelae]

NARRATIVE: CASE EVENT DATE: 20210616
